FAERS Safety Report 5342238-5 (Version None)
Quarter: 2007Q2

REPORT INFORMATION
  Report Type: 
  Country: None (occurrence: None)
  Receive Date: 20070412
  Receipt Date: 20061221
  Transmission Date: 20071010
  Serious: No
  Sender: FDA-Public Use
  Company Number: IPX00024

PATIENT
  Age: 8 Year
  Sex: Female
  Weight: 19 kg

DRUGS (2)
  1. IPLEX [Suspect]
     Indication: INSULIN-LIKE GROWTH FACTOR DECREASED
     Dosage: 20 MG/DAILY/SC
     Route: 058
     Dates: start: 20061015, end: 20061221
  2. VITAMIN CAP [Concomitant]

REACTIONS (1)
  - INJECTION SITE PAIN [None]
